FAERS Safety Report 5765137-3 (Version None)
Quarter: 2008Q2

REPORT INFORMATION
  Report Type: 
  Country: None (occurrence: None)
  Receive Date: 20080611
  Receipt Date: 20080530
  Transmission Date: 20081010
  Serious: Yes (Life-Threatening, Hospitalization)
  Sender: FDA-Public Use
  Company Number: GB-TEVA-172347ISR

PATIENT
  Sex: Female

DRUGS (1)
  1. TRIMETHOPRIM [Suspect]

REACTIONS (3)
  - BONE MARROW FAILURE [None]
  - INTESTINAL ULCER [None]
  - WHITE BLOOD CELL COUNT DECREASED [None]
